FAERS Safety Report 4433968-8 (Version None)
Quarter: 2004Q3

REPORT INFORMATION
  Report Type: 
  Country: None (occurrence: None)
  Receive Date: 20040825
  Receipt Date: 20040825
  Transmission Date: 20050211
  Serious: Yes (Other)
  Sender: FDA-Public Use
  Company Number: None

PATIENT
  Sex: Female
  Weight: 53.5244 kg

DRUGS (2)
  1. LEVOXYL [Suspect]
     Indication: HYPOTHYROIDISM
     Dosage: .1 MG DAILY ORAL
     Route: 048
     Dates: start: 20031201, end: 20040201
  2. LEVOXYL [Suspect]
     Indication: THYROID DISORDER
     Dosage: .1 MG DAILY ORAL
     Route: 048
     Dates: start: 20031201, end: 20040201

REACTIONS (16)
  - ASTHENIA [None]
  - BLOOD THYROID STIMULATING HORMONE ABNORMAL [None]
  - DRUG INEFFECTIVE [None]
  - DRY SKIN [None]
  - DYSGEUSIA [None]
  - ERUCTATION [None]
  - EYE OEDEMA [None]
  - FEELING ABNORMAL [None]
  - FLUID RETENTION [None]
  - GINGIVAL DISORDER [None]
  - MENSTRUAL DISORDER [None]
  - METABOLIC DISORDER [None]
  - PHARMACEUTICAL PRODUCT COMPLAINT [None]
  - RASH [None]
  - SKIN DISORDER [None]
  - WEIGHT INCREASED [None]
